FAERS Safety Report 5191274-0 (Version None)
Quarter: 2006Q4

REPORT INFORMATION
  Report Type: 
  Country: None (occurrence: None)
  Receive Date: 20061219
  Receipt Date: 20061219
  Transmission Date: 20070319
  Serious: Yes (Hospitalization)
  Sender: FDA-Public Use
  Company Number: None

PATIENT
  Age: 87 Year
  Sex: Male
  Weight: 80.7403 kg

DRUGS (9)
  1. SORAFENIB [Suspect]
     Indication: METASTATIC RENAL CELL CARCINOMA
     Dosage: 400 MG TWICE DAILY PO
     Route: 048
     Dates: start: 20061106, end: 20061206
  2. VALSARTAN [Concomitant]
  3. TERAZOSIN HCL [Concomitant]
  4. FUROSEMIDE [Concomitant]
  5. FELODIPINE SA [Concomitant]
  6. PYRIDOXINE HCL [Concomitant]
  7. ALBUTEROL SULFATE AND IPRATROPIUM BROMIDE [Concomitant]
  8. HYDROCORTISONE CREAM [Concomitant]
  9. SILVER SULFADIAZINE 1% [Concomitant]

REACTIONS (6)
  - PALMAR-PLANTAR ERYTHRODYSAESTHESIA SYNDROME [None]
  - SKIN DISCOLOURATION [None]
  - SKIN EXFOLIATION [None]
  - SKIN LESION [None]
  - TENDERNESS [None]
  - THERAPY NON-RESPONDER [None]
